FAERS Safety Report 15247764 (Version 1)
Quarter: 2018Q3

REPORT INFORMATION
  Report Type: Report from Study
  Country: US (occurrence: US)
  Receive Date: 20180807
  Receipt Date: 20180807
  Transmission Date: 20181010
  Serious: Yes (Other)
  Sender: FDA-Public Use
  Company Number: US-ROCHE-2162442

PATIENT
  Sex: Male

DRUGS (2)
  1. ACTEMRA [Suspect]
     Active Substance: TOCILIZUMAB
     Indication: METASTASIS
  2. ACTEMRA [Suspect]
     Active Substance: TOCILIZUMAB
     Indication: POLYARTHRITIS
     Route: 065

REACTIONS (7)
  - Abdominal pain upper [Recovered/Resolved]
  - Intentional product use issue [Unknown]
  - Dyspnoea [Recovered/Resolved]
  - Off label use [Unknown]
  - Secretion discharge [Recovered/Resolved]
  - Choking [Recovered/Resolved]
  - Chest pain [Recovered/Resolved]
